FAERS Safety Report 18926769 (Version 2)
Quarter: 2021Q2

REPORT INFORMATION
  Report Type: Spontaneous
  Country: US (occurrence: US)
  Receive Date: 20210223
  Receipt Date: 20210406
  Transmission Date: 20210717
  Serious: Yes (Other)
  Sender: FDA-Public Use
  Company Number: US-ROCHE-2710959

PATIENT
  Age: 63 Year
  Sex: Female
  Weight: 59 kg

DRUGS (33)
  1. FIRDAPSE [Suspect]
     Active Substance: AMIFAMPRIDINE PHOSPHATE
     Indication: MYASTHENIC SYNDROME
     Route: 048
     Dates: start: 2020, end: 2020
  2. FIRDAPSE [Suspect]
     Active Substance: AMIFAMPRIDINE PHOSPHATE
     Route: 048
     Dates: start: 202010, end: 20201015
  3. LEVOTHYROXINE. [Concomitant]
     Active Substance: LEVOTHYROXINE
  4. GLUCOSAMINE [Concomitant]
     Active Substance: GLUCOSAMINE
  5. ELIQUIS [Concomitant]
     Active Substance: APIXABAN
  6. FIRDAPSE [Suspect]
     Active Substance: AMIFAMPRIDINE PHOSPHATE
     Route: 048
     Dates: start: 20201003, end: 202010
  7. IVIGLOB EX [Suspect]
     Active Substance: HUMAN IMMUNOGLOBULIN G
     Indication: PRODUCT USED FOR UNKNOWN INDICATION
     Route: 042
  8. DIAZEPAM. [Suspect]
     Active Substance: DIAZEPAM
     Indication: ANXIETY
     Route: 048
     Dates: start: 20201216, end: 20201216
  9. CLARITIN [Concomitant]
     Active Substance: LORATADINE
  10. VITAMIN B COMPLEX [Concomitant]
     Active Substance: CYANOCOBALAMIN\DEXPANTHENOL\NIACINAMIDE\PYRIDOXINE HYDROCHLORIDE\RIBOFLAVIN 5^-PHOSPHATE SODIUM\THIAMINE HYDROCHLORIDE\VITAMIN B COMPLEX
  11. CALCIUM DS [Concomitant]
  12. GINKO BILOBA [Concomitant]
     Active Substance: GINKGO
  13. STINGING NETTLE ROOT [Concomitant]
  14. LEMON BALM [Concomitant]
     Active Substance: HERBALS\MELISSA OFFICINALIS
  15. OMEGA 3+VITAMIN D3 [Concomitant]
  16. SAM?E [Concomitant]
     Active Substance: ADEMETIONINE
  17. VITAMIN C [Concomitant]
     Active Substance: ASCORBIC ACID
  18. ALPHA LIPOIC ACID [Concomitant]
     Active Substance: .ALPHA.-LIPOIC ACID
  19. IRON [Concomitant]
     Active Substance: IRON
  20. MONOLAURIN [Concomitant]
  21. LIOTHYRONINE [Concomitant]
     Active Substance: LIOTHYRONINE
  22. COENZYME Q10 [Concomitant]
     Active Substance: DIETARY SUPPLEMENT\UBIDECARENONE
  23. MANGANESE [Concomitant]
     Active Substance: MANGANESE CHLORIDE
  24. N ACETYL CYSTEINE [Concomitant]
     Active Substance: ACETYLCYSTEINE
  25. DICLOFENAC [Concomitant]
     Active Substance: DICLOFENAC
  26. CURCUMIN [Concomitant]
     Active Substance: CURCUMIN
  27. GRAPE SEED EXTRACT [Concomitant]
     Active Substance: DIETARY SUPPLEMENT\GRAPE SEED EXTRACT
  28. HERICIUM ERINACEUS [Concomitant]
  29. FIRDAPSE [Suspect]
     Active Substance: AMIFAMPRIDINE PHOSPHATE
     Route: 048
     Dates: start: 20200816, end: 20201002
  30. L?GLUTAMINE [Concomitant]
  31. MSM [Concomitant]
     Active Substance: DIMETHYL SULFONE
  32. VITAMIN D3 [Concomitant]
     Active Substance: CHOLECALCIFEROL
  33. MEDROL [Concomitant]
     Active Substance: METHYLPREDNISOLONE

REACTIONS (31)
  - Psychomotor hyperactivity [Recovered/Resolved]
  - Lethargy [Not Recovered/Not Resolved]
  - Pain in jaw [Recovered/Resolved]
  - Motion sickness [Not Recovered/Not Resolved]
  - Insomnia [Recovered/Resolved]
  - Asthenia [Not Recovered/Not Resolved]
  - Headache [Not Recovered/Not Resolved]
  - Therapeutic product effect incomplete [Not Recovered/Not Resolved]
  - Oropharyngeal pain [Recovered/Resolved]
  - Hypertension [Recovered/Resolved]
  - Feeling abnormal [Not Recovered/Not Resolved]
  - Illness [Not Recovered/Not Resolved]
  - Dizziness [Not Recovered/Not Resolved]
  - Paraesthesia [Not Recovered/Not Resolved]
  - Paraesthesia [Recovered/Resolved]
  - Supraventricular tachycardia [Not Recovered/Not Resolved]
  - Nervousness [Not Recovered/Not Resolved]
  - Nausea [Not Recovered/Not Resolved]
  - Mental impairment [Not Recovered/Not Resolved]
  - Paraesthesia oral [Recovered/Resolved]
  - Inhibitory drug interaction [Not Recovered/Not Resolved]
  - Palpitations [Recovered/Resolved]
  - Head discomfort [Not Recovered/Not Resolved]
  - Chest discomfort [Recovered/Resolved]
  - Decreased appetite [Not Recovered/Not Resolved]
  - Weight decreased [Not Recovered/Not Resolved]
  - Cough [Recovered/Resolved]
  - Photopsia [Recovered/Resolved]
  - Inflammation [Not Recovered/Not Resolved]
  - Discomfort [Not Recovered/Not Resolved]
  - Anxiety [Recovered/Resolved]

NARRATIVE: CASE EVENT DATE: 20200803
